FAERS Safety Report 5422586-0 (Version None)
Quarter: 2007Q3

REPORT INFORMATION
  Report Type: 
  Country: None (occurrence: None)
  Receive Date: 20070730
  Receipt Date: 20070530
  Transmission Date: 20080115
  Serious: Yes (Other)
  Sender: FDA-Public Use
  Company Number: 200710901BWH

PATIENT
  Age: 70 Year
  Sex: Female
  Weight: 80.7403 kg

DRUGS (9)
  1. AVELOX [Suspect]
     Indication: BRONCHITIS
     Dosage: 400 MG, QD, ORAL
     Route: 048
     Dates: start: 20070304, end: 20070310
  2. AVELOX [Suspect]
     Indication: WHEEZING
     Dosage: 400 MG, QD, ORAL
     Route: 048
     Dates: start: 20070304, end: 20070310
  3. MICARDIS HCT [Concomitant]
  4. KLONOPIN [Concomitant]
  5. PRILOSEC [Concomitant]
  6. ADVAIR DISKUS 100/50 [Concomitant]
  7. ATROVENT [Concomitant]
  8. PREDNISONE TAB [Concomitant]
  9. ALLERGY SHOTS [Concomitant]

REACTIONS (14)
  - ASTHENIA [None]
  - BLOOD PRESSURE ABNORMAL [None]
  - BLOOD PRESSURE DECREASED [None]
  - EXTRASYSTOLES [None]
  - FEELING COLD [None]
  - HEART RATE INCREASED [None]
  - HEART RATE IRREGULAR [None]
  - HYPERTENSION [None]
  - HYPOTENSION [None]
  - NASAL DISCOMFORT [None]
  - PANIC ATTACK [None]
  - PERIPHERAL COLDNESS [None]
  - RHINORRHOEA [None]
  - SKIN LESION [None]
